FAERS Safety Report 6709479-3 (Version None)
Quarter: 2010Q2

REPORT INFORMATION
  Report Type: 
  Country: None (occurrence: None)
  Receive Date: 20100504
  Receipt Date: 20091217
  Transmission Date: 20101027
  Serious: Yes (Other)
  Sender: FDA-Public Use
  Company Number: CA-BAYER-200939621NA

PATIENT
  Age: 34 Year
  Sex: Female
  Weight: 86 kg

DRUGS (3)
  1. MIRENA [Suspect]
     Indication: MENORRHAGIA
     Dosage: CONTINUOUS
     Route: 015
     Dates: start: 20091105
  2. IMODIUM [Concomitant]
  3. CHLORTIAZIDE [Concomitant]

REACTIONS (7)
  - BACK PAIN [None]
  - DIARRHOEA [None]
  - DYSURIA [None]
  - IRRITABLE BOWEL SYNDROME [None]
  - PELVIC PAIN [None]
  - PHARYNGEAL OEDEMA [None]
  - URINARY TRACT INFECTION [None]
